FAERS Safety Report 6570481-6 (Version None)
Quarter: 2010Q1

REPORT INFORMATION
  Report Type: 
  Country: None (occurrence: None)
  Receive Date: 20100204
  Receipt Date: 20090831
  Transmission Date: 20100710
  Serious: Yes (Life-Threatening, Hospitalization, Other)
  Sender: FDA-Public Use
  Company Number: A0805709A

PATIENT
  Age: 93 Year
  Sex: Male

DRUGS (9)
  1. ARIXTRA [Suspect]
     Dosage: 2.5MG PER DAY
     Route: 058
     Dates: start: 20090817, end: 20090821
  2. CIPRO [Concomitant]
  3. LEXAPRO [Concomitant]
  4. VICODIN [Concomitant]
  5. REGLAN [Concomitant]
  6. MEGACE [Concomitant]
  7. PRILOSEC [Concomitant]
  8. ALDACTONE [Concomitant]
  9. FLOMAX [Concomitant]

REACTIONS (3)
  - HIP SURGERY [None]
  - OPERATIVE HAEMORRHAGE [None]
  - POST PROCEDURAL COMPLICATION [None]
